FAERS Safety Report 22132072 (Version 1)
Quarter: 2023Q1

REPORT INFORMATION
  Report Type: Report from Study
  Country: US (occurrence: None)
  Receive Date: 20230323
  Receipt Date: 20230323
  Transmission Date: 20230418
  Serious: Yes (Other)
  Sender: FDA-Public Use
  Company Number: US-ROCHE-3284165

PATIENT
  Age: 82 Year
  Sex: Female
  Weight: 89 kg

DRUGS (22)
  1. RANIBIZUMAB [Suspect]
     Active Substance: RANIBIZUMAB
     Indication: Diabetic retinal oedema
     Dosage: DOSE OF STUDY DRUG FIRST ADMINISTERED 10 MG/ML?INTERVAL EVERY 24-WEEKS, DOSE LAST STUDY DRUG ADMIN P
     Route: 050
     Dates: start: 20200630
  2. RANIBIZUMAB [Suspect]
     Active Substance: RANIBIZUMAB
  3. RANIBIZUMAB [Suspect]
     Active Substance: RANIBIZUMAB
  4. RANIBIZUMAB [Suspect]
     Active Substance: RANIBIZUMAB
  5. RANIBIZUMAB [Suspect]
     Active Substance: RANIBIZUMAB
  6. LEVOTHYROXINE [Concomitant]
     Active Substance: LEVOTHYROXINE
     Indication: Hypothyroidism
     Dosage: 125 MG/ML
     Route: 048
     Dates: start: 20011210
  7. OLMESARTAN [Concomitant]
     Active Substance: OLMESARTAN
     Indication: Hypertension
     Dosage: 40 MG/ML
     Route: 048
     Dates: start: 2017
  8. EQUATE ANTIBIOTIC + PAIN RELIEF [Concomitant]
     Indication: Lichen sclerosus
     Route: 067
     Dates: start: 2002
  9. COCONUT OIL [Concomitant]
     Active Substance: COCONUT OIL
     Indication: Lichen sclerosus
     Route: 067
     Dates: start: 2002
  10. ZINC OXIDE [Concomitant]
     Active Substance: ZINC OXIDE
     Indication: Lichen sclerosus
     Route: 067
     Dates: start: 2002
  11. EQUATE ANTI ITCH [Concomitant]
     Active Substance: DIPHENHYDRAMINE HYDROCHLORIDE\ZINC ACETATE
     Indication: Lichen sclerosus
     Route: 067
     Dates: start: 2002
  12. TRIPLE PASTE [Concomitant]
     Indication: Lichen sclerosus
     Route: 067
     Dates: start: 2002
  13. NYSTATIN [Concomitant]
     Active Substance: NYSTATIN
     Indication: Lichen sclerosus
     Route: 067
     Dates: start: 2002
  14. TRIAMCINOLONE ACETONIDE [Concomitant]
     Active Substance: TRIAMCINOLONE ACETONIDE
     Indication: Lichen sclerosus
     Route: 067
     Dates: start: 2002
  15. ZINC [Concomitant]
     Active Substance: ZINC
     Route: 048
     Dates: start: 20201001
  16. VITAMIN D3 [Concomitant]
     Active Substance: CHOLECALCIFEROL
     Indication: Vitamin D deficiency
     Route: 048
     Dates: start: 20201001
  17. VITAMIN C [Concomitant]
     Active Substance: ASCORBIC ACID
     Route: 048
     Dates: start: 20210201
  18. FUROSEMIDE [Concomitant]
     Active Substance: FUROSEMIDE
     Indication: Oedema peripheral
     Dosage: 40 MG/ML
     Route: 048
     Dates: start: 20210519
  19. OZEMPIC [Concomitant]
     Active Substance: SEMAGLUTIDE
     Dates: start: 202106
  20. ASPIRIN [Concomitant]
     Active Substance: ASPIRIN
     Route: 048
     Dates: start: 20210924
  21. OZEMPIC [Concomitant]
     Active Substance: SEMAGLUTIDE
     Indication: Type 2 diabetes mellitus
     Dosage: 0.5 MG/ML
     Route: 030
     Dates: start: 20220919
  22. METFORMIN [Concomitant]
     Active Substance: METFORMIN HYDROCHLORIDE
     Indication: Type 2 diabetes mellitus
     Dosage: 500 MG/ML
     Route: 048
     Dates: start: 20220919

REACTIONS (2)
  - Conjunctival retraction [Not Recovered/Not Resolved]
  - Eye pain [Not Recovered/Not Resolved]

NARRATIVE: CASE EVENT DATE: 20230209
